FAERS Safety Report 6181055-3 (Version None)
Quarter: 2009Q2

REPORT INFORMATION
  Report Type: 
  Country: None (occurrence: None)
  Receive Date: 20090504
  Receipt Date: 20090427
  Transmission Date: 20091009
  Serious: Yes (Death, Hospitalization)
  Sender: FDA-Public Use
  Company Number: 2008SP013336

PATIENT
  Sex: Male
  Weight: 80 kg

DRUGS (9)
  1. TEMODAL [Suspect]
     Indication: GLIOBLASTOMA
     Dosage: 17 MG/M2; Q8H; PO
     Route: 048
     Dates: start: 20080617, end: 20080701
  2. IRINOTECAN HCL [Suspect]
     Indication: GLIOBLASTOMA
     Dosage: 100 MG/M2; QD; IV
     Route: 042
     Dates: start: 20080624, end: 20080624
  3. FORTECORTIN [Concomitant]
  4. OMEPRAZOLE [Concomitant]
  5. PARACETAMOL [Concomitant]
  6. KEPPRA [Concomitant]
  7. RIVOTRIL [Concomitant]
  8. PAROXETINE [Concomitant]
  9. CYMBALTA [Concomitant]

REACTIONS (7)
  - LARYNGEAL INFLAMMATION [None]
  - LEGIONELLA INFECTION [None]
  - LYMPHOPENIA [None]
  - NOSOCOMIAL INFECTION [None]
  - PNEUMONIA [None]
  - SEPTIC SHOCK [None]
  - URINARY TRACT INFECTION [None]
